FAERS Safety Report 5280617-5 (Version None)
Quarter: 2007Q1

REPORT INFORMATION
  Report Type: 
  Country: None (occurrence: None)
  Receive Date: 20070329
  Receipt Date: 20070320
  Transmission Date: 20070707
  Serious: Yes (Hospitalization)
  Sender: FDA-Public Use
  Company Number: 2007UW05526

PATIENT
  Age: 63 Year
  Sex: Female

DRUGS (2)
  1. SEROQUEL [Suspect]
     Route: 048
  2. UNSPECIFIED MEDS [Concomitant]
     Indication: HYPOPITUITARISM

REACTIONS (1)
  - HYPOTHERMIA [None]
